FAERS Safety Report 4746802-3 (Version None)
Quarter: 2005Q3

REPORT INFORMATION
  Report Type: 
  Country: None (occurrence: None)
  Receive Date: 20050815
  Receipt Date: 20050805
  Transmission Date: 20060218
  Serious: Yes (Death, Other)
  Sender: FDA-Public Use
  Company Number: 200510484BNE

PATIENT
  Age: 78 Year
  Sex: Male
  Weight: 66 kg

DRUGS (6)
  1. ACARBOSE [Suspect]
     Indication: DIABETES MELLITUS
     Dosage: 50 MG, BID, ORAL
     Route: 048
     Dates: start: 19950101
  2. ENTACAPONE [Suspect]
     Indication: PARKINSON'S DISEASE
     Dosage: 200 MG, QID, ORAL
     Route: 048
     Dates: start: 20030604
  3. SINEMET [Concomitant]
  4. GLICLAZIDE [Concomitant]
  5. METFORMIN HCL [Concomitant]
  6. BENZHEXOL [Concomitant]

REACTIONS (3)
  - FALL [None]
  - JAUNDICE [None]
  - SUBDURAL HAEMATOMA [None]
